FAERS Safety Report 5814375-X (Version None)
Quarter: 2008Q3

REPORT INFORMATION
  Report Type: 
  Country: None (occurrence: None)
  Receive Date: 20080718
  Receipt Date: 20080717
  Transmission Date: 20090109
  Serious: Yes (Other)
  Sender: FDA-Public Use
  Company Number: US-BRISTOL-MYERS SQUIBB COMPANY-14231666

PATIENT
  Age: 6 Year
  Sex: Male

DRUGS (1)
  1. ABILIFY [Suspect]
     Indication: AFFECTIVE DISORDER
     Dosage: WAS ON ABILIFY BEFORE 4MAR08, AND THEN STARTED ON 02-APR-2008, 1 DF = 1/4 OF 2 MG ABILIFY
     Route: 048
     Dates: end: 20080522

REACTIONS (3)
  - ENCOPRESIS [None]
  - ENURESIS [None]
  - UPPER LIMB FRACTURE [None]
